FAERS Safety Report 7949000-5 (Version None)
Quarter: 2011Q4

REPORT INFORMATION
  Report Type: 
  Country: None (occurrence: None)
  Receive Date: 20111130
  Receipt Date: 20111123
  Transmission Date: 20120403
  Serious: Yes (Other)
  Sender: FDA-Public Use
  Company Number: GB-PFIZER INC-2011286577

PATIENT
  Age: 50 Year
  Sex: Male

DRUGS (3)
  1. GENOTROPIN [Suspect]
     Dosage: 0.2 MG, 1X/DAY
     Dates: start: 20110201
  2. LEVOTHYROXINE SODIUM [Concomitant]
     Dosage: 75 MG, 1X/DAY
  3. GENOTROPIN [Suspect]
     Dosage: 0.7 MG, 1X/DAY
     Dates: end: 20110201

REACTIONS (9)
  - PALPITATIONS [None]
  - INSULIN-LIKE GROWTH FACTOR INCREASED [None]
  - HEART RATE INCREASED [None]
  - PAIN [None]
  - FEELING ABNORMAL [None]
  - STRESS [None]
  - HEART RATE DECREASED [None]
  - INSOMNIA [None]
  - DYSPNOEA [None]
